FAERS Safety Report 9753820 (Version 2)
Quarter: 2013Q4

REPORT INFORMATION
  Report Type: Spontaneous
  Country: US (occurrence: US)
  Receive Date: 20131213
  Receipt Date: 20131213
  Transmission Date: 20140711
  Serious: No
  Sender: FDA-Public Use
  Company Number: US-GILEAD-2010-0027531

PATIENT
  Age: 56 Year
  Sex: Female

DRUGS (3)
  1. LETAIRIS [Suspect]
     Indication: PULMONARY ARTERIAL HYPERTENSION
     Route: 048
     Dates: start: 20090616
  2. BENICAR HCT [Concomitant]
  3. LEVOTHYROID [Concomitant]

REACTIONS (2)
  - Blood pressure decreased [Not Recovered/Not Resolved]
  - Fluid retention [Not Recovered/Not Resolved]
